FAERS Safety Report 25358226 (Version 1)
Quarter: 2025Q2

REPORT INFORMATION
  Report Type: Spontaneous
  Country: US (occurrence: US)
  Receive Date: 20250526
  Receipt Date: 20250526
  Transmission Date: 20250716
  Serious: No
  Sender: HIKMA
  Company Number: US-HIKMA PHARMACEUTICALS USA INC.-US-H14001-24-11666

PATIENT
  Sex: Male

DRUGS (1)
  1. DOXYCYCLINE [Suspect]
     Active Substance: DOXYCYCLINE
     Indication: Abscess
     Route: 065
     Dates: start: 20241205

REACTIONS (4)
  - Psychomotor hyperactivity [Unknown]
  - Sleep disorder [Unknown]
  - Insomnia [Unknown]
  - Circumstance or information capable of leading to medication error [Unknown]
